FAERS Safety Report 13220014 (Version 13)
Quarter: 2017Q3

REPORT INFORMATION
  Report Type: Report from Study
  Country: IT (occurrence: IT)
  Receive Date: 20170210
  Receipt Date: 20170727
  Transmission Date: 20171127
  Serious: Yes (Hospitalization)
  Sender: FDA-Public Use
  Company Number: IT-ROCHE-1889163

PATIENT
  Age: 66 Year
  Sex: Female
  Weight: 65 kg

DRUGS (32)
  1. CORDARONE [Concomitant]
     Active Substance: AMIODARONE HYDROCHLORIDE
     Route: 065
     Dates: start: 20170206
  2. LORAZEPAM. [Concomitant]
     Active Substance: LORAZEPAM
     Indication: INSOMNIA
     Route: 065
     Dates: start: 20170206, end: 20170208
  3. URBASON [Concomitant]
     Active Substance: METHYLPREDNISOLONE
     Indication: DYSPNOEA
     Route: 065
     Dates: start: 20170207
  4. LOSARTAN. [Concomitant]
     Active Substance: LOSARTAN
     Indication: HYPERTENSION
     Route: 065
     Dates: start: 20170103
  5. PARACETAMOLO [Concomitant]
     Active Substance: ACETAMINOPHEN
     Indication: GROIN PAIN
     Route: 065
     Dates: start: 20170126, end: 20170201
  6. MORPHINE [Concomitant]
     Active Substance: MORPHINE
     Indication: AGITATION
     Route: 065
     Dates: start: 20170207
  7. ENEMAC [Concomitant]
     Indication: CONSTIPATION
     Route: 065
     Dates: start: 20170206, end: 20170206
  8. OXYGEN. [Concomitant]
     Active Substance: OXYGEN
     Indication: DYSPNOEA
     Route: 065
     Dates: start: 20170203, end: 20170218
  9. ALOPERIDOLO [Concomitant]
     Active Substance: HALOPERIDOL
     Indication: AGITATION
     Route: 065
     Dates: start: 20170204, end: 20170208
  10. CORDARONE [Concomitant]
     Active Substance: AMIODARONE HYDROCHLORIDE
     Indication: ATRIAL FIBRILLATION
     Route: 065
     Dates: start: 20170205, end: 20170205
  11. NORVASC [Concomitant]
     Active Substance: AMLODIPINE BESYLATE
     Indication: HYPERTENSION
     Route: 065
     Dates: start: 20170103
  12. TRASTUZUMAB. [Suspect]
     Active Substance: TRASTUZUMAB
     Indication: HER-2 POSITIVE BREAST CANCER
     Dosage: DATE OF MOST RECENT DOSE PRIOR TO SAE: 05/JAN/2017
     Route: 058
     Dates: start: 20170105
  13. TORADOL [Concomitant]
     Active Substance: KETOROLAC TROMETHAMINE
     Indication: BONE PAIN
     Route: 065
     Dates: start: 20170105, end: 20170201
  14. CLEXANE [Concomitant]
     Active Substance: ENOXAPARIN SODIUM
     Indication: PULMONARY EMBOLISM
     Route: 065
     Dates: start: 20170206
  15. KEPPRA [Concomitant]
     Active Substance: LEVETIRACETAM
     Indication: EPILEPSY
     Route: 065
     Dates: start: 1998
  16. DOCETAXEL. [Suspect]
     Active Substance: DOCETAXEL
     Indication: HER-2 POSITIVE BREAST CANCER
     Dosage: DATE OF MOST RECENT DOSE PRIOR TO SAE: 05/JAN/2017
     Route: 042
  17. MIDAZOLAM [Concomitant]
     Active Substance: MIDAZOLAM HYDROCHLORIDE
     Indication: AGITATION
     Route: 065
     Dates: start: 20170204, end: 20170209
  18. TAZOCIN [Concomitant]
     Active Substance: PIPERACILLIN SODIUM\TAZOBACTAM SODIUM
     Indication: INFECTION
     Route: 065
     Dates: start: 20170204, end: 20170209
  19. LARGACTIL [Concomitant]
     Active Substance: CHLORPROMAZINE
     Indication: AGITATION
     Route: 065
     Dates: start: 20170209, end: 20170209
  20. OXACILLINA [Concomitant]
     Indication: STAPHYLOCOCCAL INFECTION
     Route: 065
     Dates: start: 20170210, end: 20170217
  21. BISOPROLOLO [Concomitant]
     Active Substance: BISOPROLOL FUMARATE
     Indication: HYPERTENSION
     Route: 065
     Dates: start: 20170103
  22. PERTUZUMAB. [Suspect]
     Active Substance: PERTUZUMAB
     Indication: HER-2 POSITIVE BREAST CANCER
     Dosage: DATE OF MOST RECENT DOSE PRIOR TO SAE: 05/JAN/2017?LOADING DOSE IN CYCLE 1
     Route: 042
     Dates: start: 20170105
  23. DIBASE [Concomitant]
     Active Substance: CHOLECALCIFEROL
     Indication: METASTASES TO BONE
     Route: 065
     Dates: start: 20170108
  24. PARACETAMOLO [Concomitant]
     Active Substance: ACETAMINOPHEN
     Indication: PAIN
     Route: 065
     Dates: start: 20170204, end: 20170204
  25. CLEXANE [Concomitant]
     Active Substance: ENOXAPARIN SODIUM
     Indication: DYSPNOEA
     Route: 065
     Dates: start: 20170204, end: 20170205
  26. INTRALIPID [Concomitant]
     Active Substance: EGG PHOSPHOLIPIDS\GLYCERIN\SOYBEAN OIL
     Indication: DECREASED APPETITE
  27. FREAMINE III NOS [Concomitant]
     Active Substance: AMINO ACIDS
     Dosage: 500 CC
     Route: 065
  28. DIAZEPAM. [Concomitant]
     Active Substance: DIAZEPAM
     Indication: AGITATION
     Route: 065
     Dates: start: 20170205, end: 20170205
  29. PERFALGAN [Concomitant]
     Active Substance: ACETAMINOPHEN
     Indication: PYREXIA
     Route: 065
     Dates: start: 20170205, end: 20170205
  30. FUROSEMIDE. [Concomitant]
     Active Substance: FUROSEMIDE
     Dosage: PROPHYLAXIS
     Route: 065
     Dates: start: 20170207
  31. MORPHINE [Concomitant]
     Active Substance: MORPHINE
     Indication: MUSCLE SPASTICITY
  32. INTRALIPID [Concomitant]
     Active Substance: EGG PHOSPHOLIPIDS\GLYCERIN\SOYBEAN OIL
     Indication: DYSPHAGIA
     Route: 065
     Dates: start: 20170204, end: 20170220

REACTIONS (1)
  - Blood electrolytes decreased [Recovered/Resolved]

NARRATIVE: CASE EVENT DATE: 20170201
